FAERS Safety Report 11358887 (Version 6)
Quarter: 2016Q2

REPORT INFORMATION
  Report Type: Report from Study
  Country: JP (occurrence: JP)
  Receive Date: 20150807
  Receipt Date: 20160614
  Transmission Date: 20160815
  Serious: Yes (Death, Other)
  Sender: FDA-Public Use
  Company Number: JP-OTSUKA-2015_006731

PATIENT
  Age: 83 Year
  Sex: Male

DRUGS (22)
  1. DOBUPUM [Concomitant]
     Active Substance: DOBUTAMINE HYDROCHLORIDE
     Indication: CARDIAC FAILURE
     Dosage: 100 ML, DAILY DOSE
     Route: 042
     Dates: start: 20150121
  2. ROHYPNOL [Concomitant]
     Active Substance: FLUNITRAZEPAM
     Indication: PRODUCT USED FOR UNKNOWN INDICATION
     Dosage: 1 MG, DAILY DOSE
     Route: 048
  3. MYOCOR [Concomitant]
     Active Substance: NITROGLYCERIN
     Indication: CARDIAC FAILURE
     Dosage: 100 MG, DAILY DOSE
     Route: 042
     Dates: end: 20150122
  4. TOLVAPTAN [Suspect]
     Active Substance: TOLVAPTAN
     Indication: FLUID RETENTION
     Dosage: 7.5 MG, QD (QAM)
     Route: 048
     Dates: start: 20150122, end: 20150126
  5. FUROSEMIDE. [Suspect]
     Active Substance: FUROSEMIDE
     Indication: CARDIAC FAILURE
     Dosage: 20 MG, DAILY DOSE
     Route: 048
     Dates: start: 20150122
  6. NICARDIPINE HYDROCHLORIDE. [Concomitant]
     Active Substance: NICARDIPINE HYDROCHLORIDE
     Indication: CARDIAC FAILURE
     Dosage: 20 MG, DAILY DOSE
     Route: 042
     Dates: end: 20150124
  7. ROZEREM [Concomitant]
     Active Substance: RAMELTEON
     Indication: PRODUCT USED FOR UNKNOWN INDICATION
     Dosage: 8 MG, DAILY DOSE
     Route: 048
  8. BAYASPIRIN [Concomitant]
     Active Substance: ASPIRIN
     Indication: PRODUCT USED FOR UNKNOWN INDICATION
     Dosage: 100 MG, DAILY DOSE
     Route: 048
     Dates: start: 20150123
  9. ESTAZOLAM. [Concomitant]
     Active Substance: ESTAZOLAM
     Indication: PRODUCT USED FOR UNKNOWN INDICATION
     Dosage: 1 MG, DAILY DOSE
     Route: 048
  10. SULBACILLIN [Concomitant]
     Active Substance: AMPICILLIN SODIUM\SULBACTAM SODIUM
     Indication: PROPHYLAXIS
     Dosage: 3 G, DAILY DOSE
     Route: 042
  11. FRANDOL [Concomitant]
     Active Substance: ISOSORBIDE DINITRATE
     Indication: PRODUCT USED FOR UNKNOWN INDICATION
     Dosage: 80 MG, DAILY DOSE
     Route: 062
     Dates: start: 20150123
  12. RENIVACE [Concomitant]
     Active Substance: ENALAPRIL
     Indication: PRODUCT USED FOR UNKNOWN INDICATION
     Dosage: 2.5 MG, DAILY DOSE
     Route: 048
     Dates: start: 20150124
  13. FUROSEMIDE. [Suspect]
     Active Substance: FUROSEMIDE
     Indication: CARDIAC FAILURE
     Dosage: 20 MG, DAILY DOSE
     Route: 042
     Dates: end: 20150126
  14. PROPOFOL. [Concomitant]
     Active Substance: PROPOFOL
     Indication: SEDATION
     Dosage: 20 ML,DAILY DOSE
     Route: 042
     Dates: start: 20150121, end: 20150123
  15. ALDACTONE A [Concomitant]
     Active Substance: SPIRONOLACTONE
     Indication: CARDIAC FAILURE
     Dosage: 25 MG, DAILY DOSE
     Route: 048
     Dates: start: 20150122
  16. ADETPHOS-L [Concomitant]
     Indication: CARDIAC FAILURE
     Dosage: 20 MG, DAILY DOSE
     Route: 042
     Dates: start: 20150121, end: 20150121
  17. PENTAZOCINE [Concomitant]
     Active Substance: PENTAZOCINE
     Indication: SEDATION
     Dosage: 30 MG, DAILY DOSE
     Route: 042
     Dates: start: 20150121, end: 20150121
  18. HYDROXYZINE HYDROCHLORIDE. [Concomitant]
     Active Substance: HYDROXYZINE HYDROCHLORIDE
     Indication: SEDATION
     Dosage: 25 MG, DAILY DOSE
     Route: 042
     Dates: start: 20150121, end: 20150121
  19. CALBLOCK [Concomitant]
     Active Substance: AZELNIDIPINE
     Indication: PRODUCT USED FOR UNKNOWN INDICATION
     Dosage: 16 MG, DAILY DOSE
     Route: 048
     Dates: start: 20150122
  20. HANP [Concomitant]
     Active Substance: CARPERITIDE
     Indication: CARDIAC FAILURE
     Dosage: 3000 ?G, DAILY DOSE
     Route: 042
     Dates: end: 20150122
  21. NICORANDIL [Concomitant]
     Active Substance: NICORANDIL
     Indication: PRODUCT USED FOR UNKNOWN INDICATION
     Dosage: 15 MG, DAILY DOSE
     Route: 048
     Dates: start: 20150124
  22. LIPITOR [Concomitant]
     Active Substance: ATORVASTATIN CALCIUM
     Indication: PRODUCT USED FOR UNKNOWN INDICATION
     Dosage: 5 MG, DAILY DOSE
     Route: 048

REACTIONS (3)
  - Renal impairment [Not Recovered/Not Resolved]
  - Thirst [Not Recovered/Not Resolved]
  - Cardiac failure congestive [Fatal]

NARRATIVE: CASE EVENT DATE: 20150122
